FAERS Safety Report 7009405-6 (Version None)
Quarter: 2010Q3

REPORT INFORMATION
  Report Type: 
  Country: None (occurrence: None)
  Receive Date: 20100921
  Receipt Date: 20100909
  Transmission Date: 20110219
  Serious: Yes (Other)
  Sender: FDA-Public Use
  Company Number: 1000016291

PATIENT
  Age: 17 Year
  Sex: Female
  Weight: 80 kg

DRUGS (5)
  1. ESCITALOPRAM [Suspect]
     Indication: DEPRESSION
     Dosage: 20 MG (20 MG, 1 IN 1 D), ORAL
     Route: 048
     Dates: start: 20100425, end: 20100615
  2. DEPAKOTE [Concomitant]
  3. LORAZEPAM [Concomitant]
  4. ATARAX [Concomitant]
  5. SERTRALINE HYDROCHLORIDE [Concomitant]

REACTIONS (2)
  - DYSPHEMIA [None]
  - OFF LABEL USE [None]
